FAERS Safety Report 5885702-2 (Version None)
Quarter: 2008Q3

REPORT INFORMATION
  Report Type: 
  Country: None (occurrence: None)
  Receive Date: 20080912
  Receipt Date: 20080904
  Transmission Date: 20090109
  Serious: Yes (Hospitalization)
  Sender: FDA-Public Use
  Company Number: 2008-02653

PATIENT
  Age: 72 Year
  Sex: Female
  Weight: 73.1 kg

DRUGS (8)
  1. VELCADE(VELCADE) VELCADE(VELCADE) INJECTION [Suspect]
     Indication: MULTIPLE MYELOMA
     Dosage: 2.4 MG, INTRAVENOUS
     Route: 042
     Dates: start: 20080415, end: 20080711
  2. OMEPRAZOLE [Concomitant]
  3. DIFLUCAN [Concomitant]
  4. STILNOCT (ZOLPIDEM TARTRATE) [Concomitant]
  5. DURAGESIC-100 [Concomitant]
  6. EPOETIN BETA (EPOETIN BETA) [Concomitant]
  7. ZOMETA [Concomitant]
  8. IMOVANE (ZOPICLONE) [Concomitant]

REACTIONS (9)
  - ASTHENIA [None]
  - DECREASED APPETITE [None]
  - DEHYDRATION [None]
  - DIARRHOEA [None]
  - FATIGUE [None]
  - FLATULENCE [None]
  - GENERAL PHYSICAL HEALTH DETERIORATION [None]
  - SCLERAL DISCOLOURATION [None]
  - SKIN TURGOR DECREASED [None]
